FAERS Safety Report 10457593 (Version 9)
Quarter: 2015Q3

REPORT INFORMATION
  Report Type: Report from Study
  Country: BE (occurrence: BE)
  Receive Date: 20140916
  Receipt Date: 20150717
  Transmission Date: 20151125
  Serious: Yes (Hospitalization)
  Sender: FDA-Public Use
  Company Number: BE-009507513-1407BEL011022

PATIENT
  Age: 71 Year
  Sex: Male
  Weight: 115 kg

DRUGS (6)
  1. DAFALGAN [Concomitant]
     Active Substance: ACETAMINOPHEN
     Indication: PANCOAST^S SYNDROME
     Dosage: 1 G, TID
     Route: 048
     Dates: start: 20140523, end: 20140723
  2. SODIUM CHLORIDE. [Concomitant]
     Active Substance: SODIUM CHLORIDE
     Indication: PREMEDICATION
     Dosage: 250 ML, ONCE
     Route: 042
     Dates: start: 20140704, end: 20140704
  3. PEMBROLIZUMAB. [Suspect]
     Active Substance: PEMBROLIZUMAB
     Indication: NON-SMALL CELL LUNG CANCER
     Dosage: 2 MG/KG, Q3W
     Route: 042
     Dates: start: 20140704, end: 20140704
  4. OXYNORM [Concomitant]
     Active Substance: OXYCODONE HYDROCHLORIDE
     Indication: PANCOAST^S SYNDROME
     Dosage: 10 MG, TID
     Route: 048
     Dates: start: 20140624, end: 20140724
  5. DUROGESIC [Concomitant]
     Active Substance: FENTANYL
     Indication: CANCER PAIN
     Dosage: 50 MICROGRAM DAILY, FREQUENCY: OTHER
     Route: 062
     Dates: start: 20140625, end: 20140718
  6. HIBIDIL [Concomitant]
     Indication: INFECTION PROPHYLAXIS
     Dosage: 1 APPLICATION, ONCE
     Route: 061
     Dates: start: 20140715, end: 20140715

REACTIONS (2)
  - Confusional state [Not Recovered/Not Resolved]
  - Fall [Recovered/Resolved]

NARRATIVE: CASE EVENT DATE: 20140715
